FAERS Safety Report 9115978 (Version 1)
Quarter: 2013Q1

REPORT INFORMATION
  Report Type: Spontaneous
  Country: FR (occurrence: FR)
  Receive Date: 20130225
  Receipt Date: 20130225
  Transmission Date: 20140127
  Serious: Yes (Hospitalization)
  Sender: FDA-Public Use
  Company Number: FR-ELI_LILLY_AND_COMPANY-FR201302004981

PATIENT
  Age: 42 Year
  Sex: Male

DRUGS (2)
  1. PROZAC [Suspect]
     Dosage: 20 MG, UNKNOWN
     Route: 048
     Dates: start: 201209, end: 20121212
  2. NORSET [Concomitant]
     Dosage: 15 MG, UNKNOWN
     Dates: end: 20121214

REACTIONS (3)
  - Eosinophilia [Recovered/Resolved]
  - Toxic skin eruption [Recovered/Resolved]
  - Pharyngitis [Recovered/Resolved]
